FAERS Safety Report 9822419 (Version 2)
Quarter: 2014Q2

REPORT INFORMATION
  Report Type: Spontaneous
  Country: JP (occurrence: JP)
  Receive Date: 20140116
  Receipt Date: 20140426
  Transmission Date: 20141212
  Serious: Yes (Other)
  Sender: FDA-Public Use
  Company Number: JP-009507513-1401JPN003908

PATIENT
  Age: 63 Year
  Sex: Female

DRUGS (2)
  1. BONALON [Suspect]
     Dosage: DAILY DOSAGE UNKNOWN
     Route: 048
  2. ADRENAL [Concomitant]
     Indication: AUTOIMMUNE HEPATITIS
     Dosage: DAILY DOSAGE UNKNOWN
     Route: 048

REACTIONS (1)
  - Femur fracture [Unknown]
